FAERS Safety Report 6018292-4 (Version None)
Quarter: 2008Q4

REPORT INFORMATION
  Report Type: 
  Country: None (occurrence: None)
  Receive Date: 20081223
  Receipt Date: 20081211
  Transmission Date: 20090506
  Serious: Yes (Hospitalization, Disabling, Other)
  Sender: FDA-Public Use
  Company Number: AT-PFIZER INC-2008091209

PATIENT

DRUGS (11)
  1. NEURONTIN [Suspect]
     Indication: BURNING SENSATION
     Dosage: 600 MG, 3X/DAY
     Route: 048
     Dates: start: 20080505, end: 20080523
  2. LYRICA [Suspect]
     Dosage: 25 MG, 2X/DAY
     Dates: start: 20080601
  3. PRONERV [Concomitant]
  4. PANTOPRAZOLE SODIUM [Concomitant]
  5. OXAZEPAM [Concomitant]
  6. MAXI-KALZ [Concomitant]
  7. NEBIVOLOL HCL [Concomitant]
  8. KCL-RETARD [Concomitant]
  9. SPIRONO [Concomitant]
  10. LASIX [Concomitant]
  11. NITROLINGUAL [Concomitant]

REACTIONS (6)
  - BALANCE DISORDER [None]
  - DECUBITUS ULCER [None]
  - DIZZINESS [None]
  - FALL [None]
  - PAIN [None]
  - PELVIC FRACTURE [None]
